FAERS Safety Report 9018751 (Version 1)
Quarter: 2013Q1

REPORT INFORMATION
  Report Type: Spontaneous
  Country: US (occurrence: US)
  Receive Date: 20130118
  Receipt Date: 20130118
  Transmission Date: 20140127
  Serious: No
  Sender: FDA-Public Use
  Company Number: US-ASTRAZENECA-2012SE92133

PATIENT
  Age: 50 Year
  Sex: Female

DRUGS (10)
  1. CAPRELSA [Suspect]
     Route: 048
     Dates: start: 20121125
  2. ALPRAZOLAM [Concomitant]
  3. CYCLOBENZAPINE [Concomitant]
  4. CYMBALTA [Concomitant]
  5. FLUDROCORTISONE [Concomitant]
  6. HYDROCODONE [Concomitant]
  7. LEVOTHYROXINE [Concomitant]
  8. MORPHINE [Concomitant]
  9. PROMETHAZINE [Concomitant]
  10. SPIRIVA [Concomitant]

REACTIONS (3)
  - Dyspnoea [Unknown]
  - Fatigue [Unknown]
  - Nausea [Unknown]
